FAERS Safety Report 24031986 (Version 1)
Quarter: 2024Q2

REPORT INFORMATION
  Report Type: Spontaneous
  Country: GB (occurrence: GB)
  Receive Date: 20240630
  Receipt Date: 20240630
  Transmission Date: 20240716
  Serious: Yes (Other)
  Sender: FDA-Public Use
  Company Number: None

PATIENT

DRUGS (1)
  1. FLUTICASONE FUROATE [Suspect]
     Active Substance: FLUTICASONE FUROATE
     Indication: Rhinitis allergic
     Dosage: UNK
     Route: 065
     Dates: end: 20240627

REACTIONS (4)
  - Tachycardia [Recovered/Resolved]
  - Anxiety [Unknown]
  - Asthenia [Unknown]
  - Loss of personal independence in daily activities [Unknown]
